FAERS Safety Report 9042431 (Version 1)
Quarter: 2013Q1

REPORT INFORMATION
  Report Type: Report from Study
  Country: US (occurrence: US)
  Receive Date: 20130129
  Receipt Date: 20130129
  Transmission Date: 20140127
  Serious: No
  Sender: FDA-Public Use
  Company Number: US-ABBOTT-12P-163-0907557-00

PATIENT
  Sex: Male
  Weight: 131.66 kg

DRUGS (6)
  1. HUMIRA 40 MG/0.8 ML PEN [Suspect]
     Indication: RHEUMATOID ARTHRITIS
     Dates: start: 2009
  2. CELEBREX [Concomitant]
     Indication: INFLAMMATION
  3. LYRICA [Concomitant]
     Indication: NERVOUS SYSTEM DISORDER
  4. HYDROCODONE [Concomitant]
     Indication: BACK PAIN
  5. HYDROCODONE [Concomitant]
     Indication: MUSCULOSKELETAL PAIN
  6. NEXIUM [Concomitant]
     Indication: DYSPEPSIA

REACTIONS (5)
  - Skin infection [Recovering/Resolving]
  - Cellulitis [Recovering/Resolving]
  - Erythema [Recovering/Resolving]
  - Oedema peripheral [Recovering/Resolving]
  - Wound drainage [Recovering/Resolving]
